FAERS Safety Report 13324837 (Version 3)
Quarter: 2017Q2

REPORT INFORMATION
  Report Type: Report from Study
  Country: None (occurrence: US)
  Receive Date: 20170310
  Receipt Date: 20170515
  Transmission Date: 20170830
  Serious: Yes (Hospitalization)
  Sender: FDA-Public Use
  Company Number: US-ABBVIE-17K-163-1897858-00

PATIENT
  Sex: Female
  Weight: 67.65 kg

DRUGS (2)
  1. HUMIRA [Suspect]
     Active Substance: ADALIMUMAB
     Indication: RHEUMATOID ARTHRITIS
     Route: 058
     Dates: end: 201507
  2. HUMIRA [Suspect]
     Active Substance: ADALIMUMAB
     Indication: PSORIASIS
     Route: 058
     Dates: start: 201702

REACTIONS (11)
  - Urosepsis [Recovered/Resolved]
  - Fall [Unknown]
  - Hypoacusis [Not Recovered/Not Resolved]
  - Spinal compression fracture [Recovered/Resolved]
  - Contusion [Recovering/Resolving]
  - Alopecia [Not Recovered/Not Resolved]
  - Bronchitis [Recovered/Resolved]
  - Urinary tract infection [Recovered/Resolved]
  - Rib fracture [Recovered/Resolved]
  - Gait disturbance [Not Recovered/Not Resolved]
  - Psoriasis [Not Recovered/Not Resolved]

NARRATIVE: CASE EVENT DATE: 2007
